FAERS Safety Report 8025103-4 (Version None)
Quarter: 2012Q1

REPORT INFORMATION
  Report Type: 
  Country: None (occurrence: None)
  Receive Date: 20120105
  Receipt Date: 20111222
  Transmission Date: 20120608
  Serious: Yes (Hospitalization)
  Sender: FDA-Public Use
  Company Number: DE-ROCHE-1026801

PATIENT
  Sex: Male

DRUGS (9)
  1. SPIRONOLACTONE [Suspect]
     Indication: SUICIDE ATTEMPT
     Route: 048
  2. ASPIRIN [Suspect]
     Indication: SUICIDE ATTEMPT
     Route: 048
  3. DIPYRONE TAB [Suspect]
     Indication: SUICIDE ATTEMPT
     Route: 048
  4. MARCUMAR [Suspect]
     Indication: SUICIDE ATTEMPT
     Route: 048
  5. TORSEMIDE [Suspect]
     Indication: SUICIDE ATTEMPT
     Route: 048
  6. LYRICA [Suspect]
     Indication: SUICIDE ATTEMPT
     Route: 048
  7. SIMVASTATIN [Suspect]
     Indication: SUICIDE ATTEMPT
     Route: 048
  8. BISOPROLOL [Suspect]
     Indication: SUICIDE ATTEMPT
     Route: 048
  9. RAMIPRIL [Suspect]
     Indication: SUICIDE ATTEMPT
     Route: 048

REACTIONS (3)
  - LACRIMATION INCREASED [None]
  - AGITATION [None]
  - SUICIDE ATTEMPT [None]
